FAERS Safety Report 7929867-7 (Version None)
Quarter: 2011Q4

REPORT INFORMATION
  Report Type: 
  Country: None (occurrence: None)
  Receive Date: 20111121
  Receipt Date: 20111115
  Transmission Date: 20120403
  Serious: No
  Sender: FDA-Public Use
  Company Number: US-PFIZER INC-2011280993

PATIENT
  Sex: Female
  Weight: 68.9 kg

DRUGS (2)
  1. CENTRUM [Suspect]
     Indication: SUPPLEMENTATION THERAPY
     Dosage: UNK, DAILY
     Route: 048
     Dates: start: 20111016, end: 20111018
  2. LEVOTHYROXINE SODIUM [Suspect]
     Indication: HYPOTHYROIDISM
     Dosage: 150 UG, DAILY
     Route: 048

REACTIONS (2)
  - MALAISE [None]
  - DIZZINESS [None]
